FAERS Safety Report 14273997 (Version 3)
Quarter: 2018Q3

REPORT INFORMATION
  Report Type: Spontaneous
  Country: US (occurrence: US)
  Receive Date: 20171211
  Receipt Date: 20180924
  Transmission Date: 20181010
  Serious: Yes (Hospitalization, Disabling, Other)
  Sender: FDA-Public Use
  Company Number: US-OTSUKA-2017_021581

PATIENT
  Age: 59 Year
  Sex: Male

DRUGS (32)
  1. TRAZODONE HYDROCHLORIDE. [Concomitant]
     Active Substance: TRAZODONE HYDROCHLORIDE
     Indication: DEPRESSION
     Dosage: 50 MG, (TAKE 4 TABLETS OF 50 MG)
     Route: 048
     Dates: start: 20150330, end: 20160330
  2. DOCUSATE [Concomitant]
     Active Substance: DOCUSATE
     Indication: FAECES HARD
     Dosage: 100 MG, QD (AT BEDTIME)
     Route: 048
     Dates: start: 20141231, end: 20160101
  3. ASPIRIN. [Concomitant]
     Active Substance: ASPIRIN
     Indication: PROPHYLAXIS
  4. NAPROXEN. [Concomitant]
     Active Substance: NAPROXEN
     Indication: PAIN
     Dosage: 500 MG, QD
     Route: 048
     Dates: start: 20141020, end: 20151021
  5. ABILIFY [Suspect]
     Active Substance: ARIPIPRAZOLE
     Indication: DEPRESSION
  6. ASPIRIN. [Concomitant]
     Active Substance: ASPIRIN
     Indication: THROMBOSIS
     Dosage: 325 MG, QD
     Route: 048
     Dates: start: 20141231, end: 20160101
  7. SULINDAC. [Concomitant]
     Active Substance: SULINDAC
     Indication: PAIN
     Dosage: 200 MG, BID (AS NEEDED)
     Route: 048
  8. CETIRIZINE HCL [Concomitant]
     Active Substance: CETIRIZINE HYDROCHLORIDE
     Indication: PRODUCT USED FOR UNKNOWN INDICATION
     Dosage: 10 MG, QD
     Route: 048
  9. AMLODIPINE BESYLATE. [Concomitant]
     Active Substance: AMLODIPINE BESYLATE
     Indication: BLOOD PRESSURE ABNORMAL
  10. METHOCARBAMOL. [Concomitant]
     Active Substance: METHOCARBAMOL
     Indication: MUSCLE SPASMS
     Dosage: 500 MG, BID
     Route: 048
     Dates: start: 20140131, end: 20160101
  11. LORAZEPAM. [Concomitant]
     Active Substance: LORAZEPAM
     Indication: PANIC ATTACK
     Dosage: 1 MG, QD (AS NEEDED)
     Route: 048
  12. BUPROPION HCL [Concomitant]
     Active Substance: BUPROPION HYDROCHLORIDE
     Indication: ANXIETY
     Dosage: 75 MG, QD
     Route: 048
     Dates: start: 20150330, end: 20160330
  13. LOVASTATIN. [Concomitant]
     Active Substance: LOVASTATIN
     Indication: BLOOD CHOLESTEROL ABNORMAL
     Dosage: 40 MG, QD (AT BEDTIME)
     Route: 048
     Dates: start: 20141231, end: 20160101
  14. OMEPRAZOLE. [Concomitant]
     Active Substance: OMEPRAZOLE
     Indication: ABDOMINAL DISCOMFORT
     Dosage: 20 MG, TAKE 2 TABLETS BY MOUTH DAILY
     Route: 048
     Dates: start: 20141231, end: 20160101
  15. POTASSIUM CHLORIDE. [Concomitant]
     Active Substance: POTASSIUM CHLORIDE
     Indication: MINERAL SUPPLEMENTATION
     Dosage: 20 MEQ, TAKE ONE HALF TABLET BY MOUTH EVERY MORNING
     Route: 048
     Dates: start: 20141231, end: 20160101
  16. SILDENAFIL CITRATE. [Concomitant]
     Active Substance: SILDENAFIL CITRATE
     Indication: ERECTILE DYSFUNCTION
     Dosage: 100 MG (ONE HOUS BEFORE SEXUAL ACTIVITY)
     Route: 048
     Dates: start: 20150330, end: 20160330
  17. INFLUENZA VACCINE [Concomitant]
     Active Substance: INFLUENZA VIRUS VACCINE
     Indication: PROPHYLAXIS
     Dosage: UNK
     Route: 065
  18. HYDROCHLOROTHIAZIDE. [Concomitant]
     Active Substance: HYDROCHLOROTHIAZIDE
     Indication: DIURETIC THERAPY
     Dosage: 25 MG, QD (TAKE ONE HALF TABLET)
     Route: 048
  19. TIZANIDINE HCL [Concomitant]
     Active Substance: TIZANIDINE HYDROCHLORIDE
     Indication: MUSCLE SPASMS
     Dosage: 4 MG, QD (AT BEDTIME)
     Route: 048
  20. ABILIFY [Suspect]
     Active Substance: ARIPIPRAZOLE
     Indication: MENTAL DISORDER
  21. BUSPIRONE HCL [Concomitant]
     Active Substance: BUSPIRONE HYDROCHLORIDE
     Indication: ANXIETY
     Dosage: TAKE 2 TABLEST BY MOUTH THREE TIMES A DAY, TID
     Route: 048
     Dates: start: 20150330, end: 20160330
  22. TRIAMCINOLONE ACETONIDE. [Concomitant]
     Active Substance: TRIAMCINOLONE ACETONIDE
     Indication: SKIN DISORDER
     Dosage: UNK, BID (SMALL AMOUNT)
     Route: 061
  23. VARDENAFIL HCL [Concomitant]
     Indication: ERECTILE DYSFUNCTION
     Dosage: 20 MG, UNK (HALF TABLET)
     Route: 048
  24. BUPROPION HCL [Concomitant]
     Active Substance: BUPROPION HYDROCHLORIDE
     Indication: DEPRESSION
     Dosage: 10 MG, TWO TABLETS OF 10 MG THREE TIMES A DAY
     Route: 048
     Dates: start: 20141124, end: 20151125
  25. FLUOCINONIDE. [Concomitant]
     Active Substance: FLUOCINONIDE
     Indication: SKIN DISORDER
     Dosage: UNK, SMALL AMOUNT
     Route: 061
  26. ABILIFY [Suspect]
     Active Substance: ARIPIPRAZOLE
     Indication: POST-TRAUMATIC STRESS DISORDER
     Dosage: 10 MG, QD (HALF TABLET AS NEEDED)
     Route: 048
     Dates: start: 2010, end: 2015
  27. FLUOXETINE HCL [Concomitant]
     Active Substance: FLUOXETINE HYDROCHLORIDE
     Indication: DEPRESSION
     Dosage: 20 MG, QD
     Route: 048
     Dates: start: 20141124
  28. FLUOXETINE HCL [Concomitant]
     Active Substance: FLUOXETINE HYDROCHLORIDE
     Dosage: 20 MG, QD
     Route: 048
     Dates: start: 20150330, end: 20160330
  29. AMLODIPINE BESYLATE. [Concomitant]
     Active Substance: AMLODIPINE BESYLATE
     Indication: CARDIAC DISORDER
     Dosage: 0.5 DF, QD
     Route: 048
     Dates: start: 20141231, end: 20160101
  30. NAPROXEN. [Concomitant]
     Active Substance: NAPROXEN
     Indication: INFLAMMATION
  31. FLUOXETINE [Concomitant]
     Active Substance: FLUOXETINE HYDROCHLORIDE
     Indication: DEPRESSION
     Dosage: 60 MG, QD (THREE CAPSULE BY MOUTH)
     Route: 048
  32. SULINDAC. [Concomitant]
     Active Substance: SULINDAC
     Indication: INFLAMMATION

REACTIONS (28)
  - Condition aggravated [Unknown]
  - Hypoxia [Unknown]
  - Rhinorrhoea [Unknown]
  - Panic attack [Unknown]
  - Rash [Unknown]
  - Nasal septal operation [Unknown]
  - Haemorrhoids [Unknown]
  - Blunted affect [Unknown]
  - Vasomotor rhinitis [Unknown]
  - Cough [Unknown]
  - Sleep apnoea syndrome [Unknown]
  - Anaemia [Unknown]
  - Economic problem [Unknown]
  - Disability [Unknown]
  - Injury [Unknown]
  - Testicular hypertrophy [Unknown]
  - Gastrooesophageal reflux disease [Unknown]
  - Compulsive shopping [Recovered/Resolved]
  - Gambling disorder [Recovered/Resolved]
  - Product use in unapproved indication [Unknown]
  - Tooth abscess [Unknown]
  - Malignant melanoma [Not Recovered/Not Resolved]
  - Folliculitis [Unknown]
  - Obesity [Unknown]
  - Nasal congestion [Unknown]
  - Anxiety [Unknown]
  - Seborrhoeic keratosis [Unknown]
  - Wrong technique in product usage process [Unknown]

NARRATIVE: CASE EVENT DATE: 2012
